FAERS Safety Report 7331818-3 (Version None)
Quarter: 2011Q1

REPORT INFORMATION
  Report Type: 
  Country: None (occurrence: None)
  Receive Date: 20110304
  Receipt Date: 20110301
  Transmission Date: 20110831
  Serious: Yes (Hospitalization)
  Sender: FDA-Public Use
  Company Number: US-SANOFI-AVENTIS-2011SA010441

PATIENT
  Age: 62 Year
  Sex: Male

DRUGS (1)
  1. LASIX [Suspect]
     Route: 065
     Dates: start: 20110201

REACTIONS (1)
  - PNEUMONIA [None]
